FAERS Safety Report 10056482 (Version 1)
Quarter: 2014Q2

REPORT INFORMATION
  Report Type: Spontaneous
  Country: US (occurrence: None)
  Receive Date: 20140401
  Receipt Date: 20140401
  Transmission Date: 20141212
  Serious: Yes (Other)
  Sender: FDA-Public Use
  Company Number: 2014-US-003396

PATIENT
  Age: 30 Year
  Sex: Female
  Weight: 52.6 kg

DRUGS (2)
  1. XYREM [Suspect]
     Indication: NARCOLEPSY
     Route: 048
     Dates: start: 201211, end: 2012
  2. NUVIGIL [Concomitant]

REACTIONS (5)
  - Gallbladder disorder [None]
  - Weight decreased [None]
  - Gastritis [None]
  - Muscle spasms [None]
  - Condition aggravated [None]
